FAERS Safety Report 7757911-9 (Version None)
Quarter: 2011Q3

REPORT INFORMATION
  Report Type: 
  Country: None (occurrence: None)
  Receive Date: 20110918
  Receipt Date: 20101208
  Transmission Date: 20111222
  Serious: Yes (Other)
  Sender: FDA-Public Use
  Company Number: PHHY2010DE92260

PATIENT
  Age: 63 Year
  Sex: Female

DRUGS (7)
  1. METHOTREXATE [Concomitant]
  2. CYCLOPHOSPHAMIDE [Concomitant]
  3. FLUOROURACIL [Concomitant]
  4. ZOLEDRONIC [Suspect]
     Dosage: UNK UKN, UNK
     Route: 042
  5. MITOXANTRONE [Concomitant]
  6. PAMIDRONATE DISODIUM [Suspect]
     Dosage: UNK UKN, UNK
     Route: 042
  7. MELPHALAN HYDROCHLORIDE [Concomitant]

REACTIONS (2)
  - ABSCESS [None]
  - OSTEONECROSIS OF JAW [None]
